FAERS Safety Report 6601281-6 (Version None)
Quarter: 2010Q1

REPORT INFORMATION
  Report Type: 
  Country: None (occurrence: None)
  Receive Date: 20100225
  Receipt Date: 20100219
  Transmission Date: 20100710
  Serious: Yes (Hospitalization)
  Sender: FDA-Public Use
  Company Number: JP-BAYER-200911410BYL

PATIENT
  Age: 63 Year
  Sex: Male

DRUGS (16)
  1. NEXAVAR [Suspect]
     Indication: RENAL CELL CARCINOMA
     Dosage: UNIT DOSE: 200 MG
     Route: 048
     Dates: start: 20080612
  2. TAGAMET [Concomitant]
     Route: 048
     Dates: start: 20080612
  3. METHYCOBAL [Concomitant]
     Route: 048
     Dates: start: 20080612, end: 20090610
  4. GASMOTIN [Concomitant]
     Route: 048
     Dates: start: 20080612, end: 20090318
  5. GASCON [Concomitant]
     Route: 048
     Dates: start: 20080612, end: 20090318
  6. ADONA [Concomitant]
     Route: 048
     Dates: start: 20080612, end: 20090610
  7. CEFDINIR [Concomitant]
     Indication: PROPHYLAXIS
     Route: 048
     Dates: start: 20080822, end: 20080824
  8. CEFDINIR [Concomitant]
     Route: 048
     Dates: start: 20090220, end: 20090222
  9. CEFDINIR [Concomitant]
     Route: 048
     Dates: start: 20081121, end: 20081123
  10. HYPEN [Concomitant]
     Indication: PROPHYLAXIS
     Route: 048
     Dates: start: 20081121, end: 20081123
  11. HYPEN [Concomitant]
     Route: 048
     Dates: start: 20080822, end: 20080824
  12. HYPEN [Concomitant]
     Route: 048
     Dates: start: 20090220, end: 20090222
  13. OLMETEC [Concomitant]
     Route: 048
     Dates: start: 20090515, end: 20090610
  14. FLUITRAN [Concomitant]
     Route: 048
     Dates: start: 20090522, end: 20090610
  15. ADALAT CC [Concomitant]
     Route: 048
     Dates: start: 20090515
  16. ZOLOFT [Concomitant]
     Route: 048
     Dates: start: 20090709

REACTIONS (8)
  - ANXIETY [None]
  - DECREASED APPETITE [None]
  - DEHYDRATION [None]
  - DEPRESSION [None]
  - HYPERTENSION [None]
  - HYPERURICAEMIA [None]
  - HYPOPHOSPHATAEMIA [None]
  - PALMAR-PLANTAR ERYTHRODYSAESTHESIA SYNDROME [None]
